FAERS Safety Report 4981627-5 (Version None)
Quarter: 2006Q2

REPORT INFORMATION
  Report Type: 
  Country: None (occurrence: None)
  Receive Date: 20060425
  Receipt Date: 20060407
  Transmission Date: 20061013
  Serious: Yes (Other)
  Sender: FDA-Public Use
  Company Number: PHEH2006US04598

PATIENT
  Age: 65 Year
  Sex: Female

DRUGS (1)
  1. ZOMETA [Suspect]
     Indication: METASTASES TO BONE
     Dosage: UNK MG, Q 6 WEEKS
     Dates: start: 20030101, end: 20051201

REACTIONS (10)
  - BONE DISORDER [None]
  - BONE GRAFT [None]
  - DENTAL IMPLANTATION [None]
  - DENTAL OPERATION [None]
  - IMPAIRED HEALING [None]
  - LYMPHADENOPATHY [None]
  - ORAL SOFT TISSUE DISORDER [None]
  - PAIN [None]
  - PRIMARY SEQUESTRUM [None]
  - TOOTH EXTRACTION [None]
